FAERS Safety Report 4602048-0 (Version None)
Quarter: 2005Q1

REPORT INFORMATION
  Report Type: 
  Country: None (occurrence: None)
  Receive Date: 20050131
  Receipt Date: 20041206
  Transmission Date: 20050727
  Serious: No
  Sender: FDA-Public Use
  Company Number: 200418816US

PATIENT
  Age: 55 Year
  Sex: Male

DRUGS (3)
  1. TELITHROMYCIN (KETEK) TABLETS [Suspect]
     Indication: BRONCHITIS
     Dosage: 2 TABLETS, 400 MG QD
     Dates: start: 20041108, end: 20041112
  2. CEFUROXIME AXETIL [Concomitant]
  3. SODIUM CHLORIDE 0.9% [Concomitant]

REACTIONS (6)
  - COUGH [None]
  - DRUG INEFFECTIVE [None]
  - FATIGUE [None]
  - PAIN [None]
  - PARANASAL SINUS HYPERSECRETION [None]
  - SENSATION OF PRESSURE [None]
